FAERS Safety Report 17531708 (Version 1)
Quarter: 2020Q1

REPORT INFORMATION
  Report Type: Spontaneous
  Country: US (occurrence: US)
  Receive Date: 20200311
  Receipt Date: 20200311
  Transmission Date: 20200409
  Serious: No
  Sender: FDA-Public Use
  Company Number: None

PATIENT
  Age: 12 Year
  Sex: Male

DRUGS (1)
  1. SINGULAIR [Suspect]
     Active Substance: MONTELUKAST SODIUM
     Indication: RHINITIS ALLERGIC
     Route: 048
     Dates: start: 20170301, end: 20200308

REACTIONS (8)
  - Obsessive-compulsive disorder [None]
  - Hostility [None]
  - Aggression [None]
  - Disruptive mood dysregulation disorder [None]
  - School refusal [None]
  - Agitation [None]
  - Anxiety [None]
  - Social avoidant behaviour [None]

NARRATIVE: CASE EVENT DATE: 20200101
